FAERS Safety Report 16158491 (Version 1)
Quarter: 2019Q2

REPORT INFORMATION
  Report Type: Spontaneous
  Country: US (occurrence: US)
  Receive Date: 20190403
  Receipt Date: 20190403
  Transmission Date: 20190711
  Serious: Yes (Hospitalization, Other)
  Sender: FDA-Public Use
  Company Number: None

PATIENT
  Age: 31 Year
  Sex: Female
  Weight: 87.75 kg

DRUGS (1)
  1. [NO NAME] THC REFILL CARTRIDGE [Suspect]
     Active Substance: DRONABINOL
     Indication: MIGRAINE
     Route: 055
     Dates: start: 20190322, end: 20190322

REACTIONS (1)
  - Seizure [None]

NARRATIVE: CASE EVENT DATE: 20190322
